FAERS Safety Report 8182594-6 (Version None)
Quarter: 2012Q1

REPORT INFORMATION
  Report Type: 
  Country: None (occurrence: None)
  Receive Date: 20120305
  Receipt Date: 20110511
  Transmission Date: 20120608
  Serious: Yes (Other)
  Sender: FDA-Public Use
  Company Number: US-JNJCP-30000054094

PATIENT
  Age: 55 Year
  Sex: Female
  Weight: 131 kg

DRUGS (5)
  1. GLYPRIDE 5 MG [Concomitant]
  2. AMBI FADE CREAM NORMAL SKIN 2OZ USA 381370022299 8137002229USA [Suspect]
     Indication: PRODUCT USED FOR UNKNOWN INDICATION
     Dosage: SMALL AMOUNT, ONCE IN MORNING
     Route: 061
     Dates: start: 20110509
  3. GLYPRIDE 2MG [Concomitant]
     Dosage: ONCE DAILY FOR YEARS
  4. 2MG GLUPRIDE [Concomitant]
  5. AMBI EVEN + CLEAR EXFOLIATING WASH USA AMECWEUS [Suspect]
     Dosage: MORNING TIME
     Route: 061
     Dates: start: 20110509

REACTIONS (1)
  - HYPERSENSITIVITY [None]
